FAERS Safety Report 7232967-0 (Version None)
Quarter: 2011Q1

REPORT INFORMATION
  Report Type: 
  Country: None (occurrence: None)
  Receive Date: 20110119
  Receipt Date: 20110104
  Transmission Date: 20110831
  Serious: Yes (Other)
  Sender: FDA-Public Use
  Company Number: US-ACTELION-A-US2011-43438

PATIENT

DRUGS (1)
  1. TRACLEER [Suspect]
     Dosage: UNK
     Route: 048
     Dates: start: 20100201, end: 20100801

REACTIONS (3)
  - HAEMATOCHEZIA [None]
  - HEPATIC CIRRHOSIS [None]
  - HAEMATEMESIS [None]
